FAERS Safety Report 22956278 (Version 2)
Quarter: 2023Q4

REPORT INFORMATION
  Report Type: Spontaneous
  Country: US (occurrence: US)
  Receive Date: 20230919
  Receipt Date: 20231030
  Transmission Date: 20240109
  Serious: No
  Sender: FDA-Public Use
  Company Number: US-BRISTOL-MYERS SQUIBB COMPANY-2023-132438

PATIENT
  Age: 63 Year
  Sex: Female
  Weight: 68.95 kg

DRUGS (2)
  1. REVLIMID [Suspect]
     Active Substance: LENALIDOMIDE
     Indication: Plasma cell myeloma
     Dosage: 3WKSON,1WKOFF
     Route: 048
  2. REVLIMID [Suspect]
     Active Substance: LENALIDOMIDE
     Dosage: 3WKSON,1WKOFF
     Route: 048

REACTIONS (10)
  - Dry mouth [Unknown]
  - Dizziness [Unknown]
  - Constipation [Recovering/Resolving]
  - Alopecia [Unknown]
  - Eructation [Unknown]
  - Flatulence [Recovering/Resolving]
  - Renal disorder [Unknown]
  - Abdominal pain upper [Recovering/Resolving]
  - Hypoaesthesia [Not Recovered/Not Resolved]
  - Paraesthesia [Not Recovered/Not Resolved]
